FAERS Safety Report 13110497 (Version 1)
Quarter: 2017Q1

REPORT INFORMATION
  Report Type: Spontaneous
  Country: US (occurrence: US)
  Receive Date: 20170112
  Receipt Date: 20170112
  Transmission Date: 20170428
  Serious: Yes (Other)
  Sender: FDA-Public Use
  Company Number: US-ROCHE-1100682

PATIENT
  Age: 72 Year
  Sex: Male

DRUGS (2)
  1. ACTIVASE [Suspect]
     Active Substance: ALTEPLASE
     Dosage: 53 CC
     Route: 065
  2. ACTIVASE [Suspect]
     Active Substance: ALTEPLASE
     Indication: ACUTE MYOCARDIAL INFARCTION
     Dosage: 3-4 MINUTES
     Route: 040

REACTIONS (6)
  - Ventricular tachycardia [Unknown]
  - Dizziness [Unknown]
  - Bradycardia [Unknown]
  - Pain [Recovered/Resolved]
  - Blood pressure decreased [Unknown]
  - Atrioventricular block complete [Unknown]
